FAERS Safety Report 7557938-6 (Version None)
Quarter: 2011Q2

REPORT INFORMATION
  Report Type: 
  Country: None (occurrence: None)
  Receive Date: 20110620
  Receipt Date: 20110607
  Transmission Date: 20111010
  Serious: Yes (Hospitalization)
  Sender: FDA-Public Use
  Company Number: B0726135A

PATIENT
  Sex: Male
  Weight: 78 kg

DRUGS (4)
  1. PROPAFENONE HCL [Suspect]
     Dosage: 1UNIT THREE TIMES PER DAY
     Route: 065
     Dates: start: 20110311, end: 20110503
  2. EZETIMIBE/SIMVASTATIN [Concomitant]
     Route: 065
  3. METFORMIN HCL [Concomitant]
     Dosage: 3TAB PER DAY
     Route: 065
  4. ACENOCOUMAROL [Concomitant]
     Route: 065

REACTIONS (1)
  - HEPATOTOXICITY [None]
